FAERS Safety Report 12760903 (Version 2)
Quarter: 2016Q4

REPORT INFORMATION
  Report Type: Spontaneous
  Country: US (occurrence: US)
  Receive Date: 20160919
  Receipt Date: 20161031
  Transmission Date: 20170207
  Serious: No
  Sender: FDA-Public Use
  Company Number: US-ASTRAZENECA-2016SE98266

PATIENT
  Age: 97 Year
  Sex: Female

DRUGS (4)
  1. BRILINTA [Suspect]
     Active Substance: TICAGRELOR
     Indication: MYOCARDIAL INFARCTION
     Dosage: 90.0MG UNKNOWN
     Route: 048
     Dates: start: 2014
  2. BRILINTA [Suspect]
     Active Substance: TICAGRELOR
     Indication: MYOCARDIAL INFARCTION
     Dosage: 90.0MG UNKNOWN
     Route: 048
  3. POTASSIUM [Concomitant]
     Active Substance: POTASSIUM
  4. BRILINTA [Suspect]
     Active Substance: TICAGRELOR
     Indication: MYOCARDIAL INFARCTION
     Dosage: 60.0MG UNKNOWN
     Route: 048
     Dates: start: 2015

REACTIONS (5)
  - Skin ulcer [Unknown]
  - Alopecia [Unknown]
  - Cardiac disorder [Unknown]
  - Reaction to drug excipients [Unknown]
  - Dizziness [Unknown]
